FAERS Safety Report 6403139-4 (Version None)
Quarter: 2009Q4

REPORT INFORMATION
  Report Type: 
  Country: None (occurrence: None)
  Receive Date: 20091015
  Receipt Date: 20091015
  Transmission Date: 20100525
  Serious: Yes (Other)
  Sender: FDA-Public Use
  Company Number: None

PATIENT
  Sex: Female
  Weight: 46.7205 kg

DRUGS (1)
  1. OXYBUTYNIN 10 MG ER [Suspect]
     Indication: BLADDER DISORDER
     Dosage: 1 TIME DAILY 1 TIME DAILY
     Dates: start: 20080702

REACTIONS (5)
  - DRY EYE [None]
  - DRY MOUTH [None]
  - DRY SKIN [None]
  - MOUTH HAEMORRHAGE [None]
  - NASAL DRYNESS [None]
